FAERS Safety Report 16112327 (Version 1)
Quarter: 2019Q1

REPORT INFORMATION
  Report Type: Spontaneous
  Country: US (occurrence: US)
  Receive Date: 20190221
  Receipt Date: 20190221
  Transmission Date: 20190418
  Serious: No
  Sender: FDA-Public Use
  Company Number: None

PATIENT
  Sex: Female

DRUGS (1)
  1. ILARIS [Suspect]
     Active Substance: CANAKINUMAB
     Indication: HYPER IGD SYNDROME
     Dosage: ?          OTHER FREQUENCY:EVERY 8 WKS;?
     Route: 058
     Dates: start: 20180615

REACTIONS (4)
  - Musculoskeletal stiffness [None]
  - Dysstasia [None]
  - Pain in extremity [None]
  - Pain [None]
